FAERS Safety Report 5293827-8 (Version None)
Quarter: 2007Q2

REPORT INFORMATION
  Report Type: 
  Country: None (occurrence: None)
  Receive Date: 20070411
  Receipt Date: 20070402
  Transmission Date: 20071010
  Serious: Yes (Other)
  Sender: FDA-Public Use
  Company Number: US-PFIZER INC-2007001906

PATIENT
  Sex: Female
  Weight: 108.9 kg

DRUGS (3)
  1. BEXTRA [Suspect]
     Indication: ARTHRITIS
     Dates: start: 20020701, end: 20050201
  2. BEXTRA [Suspect]
     Indication: ANKYLOSING SPONDYLITIS
  3. BEXTRA [Suspect]
     Indication: BACK PAIN

REACTIONS (5)
  - BLOOD PRESSURE INCREASED [None]
  - DEPRESSION [None]
  - OBSESSIVE-COMPULSIVE DISORDER [None]
  - PAIN [None]
  - STEVENS-JOHNSON SYNDROME [None]
